FAERS Safety Report 21746530 (Version 2)
Quarter: 2023Q2

REPORT INFORMATION
  Report Type: Report from Study
  Country: CO (occurrence: CO)
  Receive Date: 20221219
  Receipt Date: 20230405
  Transmission Date: 20230721
  Serious: Yes (Other)
  Sender: FDA-Public Use
  Company Number: CO-ABBVIE-4240651

PATIENT
  Sex: Male
  Weight: 68 kg

DRUGS (9)
  1. HUMIRA [Suspect]
     Active Substance: ADALIMUMAB
     Indication: Ankylosing spondylitis
     Dosage: HUMIRA 40MG/0.4ML
     Route: 058
     Dates: start: 20181101, end: 20221127
  2. dimethicone and trimebutine [Concomitant]
     Indication: Irritable bowel syndrome
     Dates: start: 2021, end: 2021
  3. HYRIMOZ [Suspect]
     Active Substance: ADALIMUMAB-ADAZ
     Indication: Ankylosing spondylitis
     Dates: start: 20221201
  4. NAPROXEN [Concomitant]
     Active Substance: NAPROXEN
     Indication: Limb operation
     Dosage: 250 (NO UNITS REPORTED)
     Route: 048
     Dates: start: 20230327, end: 202303
  5. ACETAMINOPHEN AND CODEINE [Suspect]
     Active Substance: ACETAMINOPHEN\CODEINE PHOSPHATE
     Indication: Pain management
     Route: 048
     Dates: start: 2019, end: 2019
  6. DIMETHICONE [Concomitant]
     Active Substance: DIMETHICONE
     Indication: Irritable bowel syndrome
     Dates: start: 2021
  7. IBUPROFEN [Suspect]
     Active Substance: IBUPROFEN
     Indication: Postoperative care
     Route: 048
     Dates: start: 202208, end: 202208
  8. METFORMIN [Concomitant]
     Active Substance: METFORMIN HYDROCHLORIDE
     Indication: Blood glucose abnormal
     Route: 048
     Dates: start: 2021, end: 2022
  9. HYRIMOZ [Suspect]
     Active Substance: ADALIMUMAB-ADAZ
     Indication: Product used for unknown indication
     Dates: start: 20221211

REACTIONS (32)
  - Tooth disorder [Recovered/Resolved]
  - Dyspepsia [Recovered/Resolved]
  - Pallor [Recovered/Resolved]
  - Blood glucose increased [Recovering/Resolving]
  - Pain in extremity [Not Recovered/Not Resolved]
  - Blood glucose increased [Recovering/Resolving]
  - Spinal disorder [Not Recovered/Not Resolved]
  - Constipation [Recovering/Resolving]
  - Arthralgia [Not Recovered/Not Resolved]
  - Gastritis [Recovered/Resolved]
  - Eructation [Recovered/Resolved]
  - Rotator cuff syndrome [Not Recovered/Not Resolved]
  - Dyspepsia [Recovering/Resolving]
  - Bursitis [Not Recovered/Not Resolved]
  - Trigger finger [Recovering/Resolving]
  - Irritable bowel syndrome [Recovering/Resolving]
  - Tenosynovitis [Not Recovered/Not Resolved]
  - Weight decreased [Recovering/Resolving]
  - Pain [Not Recovered/Not Resolved]
  - Mass [Not Recovered/Not Resolved]
  - Sitting disability [Not Recovered/Not Resolved]
  - Dizziness [Recovered/Resolved]
  - Discomfort [Not Recovered/Not Resolved]
  - Loss of personal independence in daily activities [Not Recovered/Not Resolved]
  - Loose tooth [Recovered/Resolved]
  - Blister [Recovered/Resolved]
  - Trigger finger [Not Recovered/Not Resolved]
  - Cardiac discomfort [Recovered/Resolved]
  - Pallor [Recovered/Resolved]
  - Hypertrophy [Not Recovered/Not Resolved]
  - Chest discomfort [Recovered/Resolved]
  - Hand fracture [Recovering/Resolving]

NARRATIVE: CASE EVENT DATE: 20190101
